FAERS Safety Report 6606891-8 (Version None)
Quarter: 2010Q1

REPORT INFORMATION
  Report Type: 
  Country: None (occurrence: None)
  Receive Date: 20100226
  Receipt Date: 20090219
  Transmission Date: 20100710
  Serious: No
  Sender: FDA-Public Use
  Company Number: US-ALLERGAN-0902287US

PATIENT
  Sex: Female

DRUGS (2)
  1. BOTOX COSMETIC [Suspect]
     Indication: SKIN WRINKLING
     Dosage: EVERY 3-4 MONTHS
     Route: 030
     Dates: start: 20070101
  2. BOTOX COSMETIC [Suspect]
     Dosage: UNK, SINGLE
     Route: 030
     Dates: start: 20081001, end: 20081001

REACTIONS (2)
  - HYPOSMIA [None]
  - MADAROSIS [None]
